FAERS Safety Report 6341771-7 (Version None)
Quarter: 2009Q3

REPORT INFORMATION
  Report Type: 
  Country: None (occurrence: None)
  Receive Date: 20090902
  Receipt Date: 20090902
  Transmission Date: 20100115
  Serious: Yes (Other)
  Sender: FDA-Public Use
  Company Number: None

PATIENT
  Sex: Female
  Weight: 85.7298 kg

DRUGS (1)
  1. ADDERALL 10 [Suspect]
     Indication: ATTENTION DEFICIT/HYPERACTIVITY DISORDER
     Dosage: 1 TABLET 2 TIMES A DAY -2X- PO
     Route: 048
     Dates: start: 20090730, end: 20090829

REACTIONS (4)
  - ANXIETY [None]
  - GASTRIC DISORDER [None]
  - HEADACHE [None]
  - PALPITATIONS [None]
